FAERS Safety Report 11497226 (Version 5)
Quarter: 2016Q3

REPORT INFORMATION
  Report Type: Report from Study
  Country: US (occurrence: US)
  Receive Date: 20150911
  Receipt Date: 20160908
  Transmission Date: 20161109
  Serious: Yes (Hospitalization)
  Sender: FDA-Public Use
  Company Number: US-PFIZER INC-2015297326

PATIENT
  Age: 17 Year
  Sex: Male
  Weight: 61.1 kg

DRUGS (34)
  1. CRIZOTINIB [Suspect]
     Active Substance: CRIZOTINIB
     Dosage: 165 MG/M2, CYCLIC, COURSE A AND B ON 1-21 DAYS (165 MG/M2, 2 IN 1 D)
     Route: 048
     Dates: start: 20141103, end: 20141120
  2. CYCLOPHOSPHAMIDE. [Suspect]
     Active Substance: CYCLOPHOSPHAMIDE
     Dosage: 352 MG, COURSE B, OVER 15-30 MINUTES ON DAYS 1-5 (348 MG, 5 IN 21 D)
     Dates: start: 20140919, end: 20140923
  3. CYCLOPHOSPHAMIDE. [Suspect]
     Active Substance: CYCLOPHOSPHAMIDE
     Dosage: (1 IN 1 CYCLICAL)
     Dates: start: 20141103, end: 20141107
  4. DEXAMETHASONE. [Suspect]
     Active Substance: DEXAMETHASONE
     Indication: ANAPLASTIC LARGE CELL LYMPHOMA T- AND NULL-CELL TYPES
     Dosage: 9 MG, PROPHASE (CYCLE = 5 DAYS) ON DAYS 1-2 (9 MG, 1 IN 1 D)
     Route: 048
     Dates: start: 20140703
  5. DEXAMETHASONE. [Suspect]
     Active Substance: DEXAMETHASONE
     Dosage: 8.75 MG COURSE A AND B, ON DAYS 1-5 (8.75 MG, 2 IN 1 D)
     Dates: start: 20140830, end: 20140903
  6. HYDROCORTISONE. [Concomitant]
     Active Substance: HYDROCORTISONE
     Indication: ANAPLASTIC LARGE CELL LYMPHOMA T- AND NULL-CELL TYPES
     Dosage: 12 MG, CYCLIC: PROPHASE (CYCLE=5 DAYS) (12 MG, 1 IN 1 ONCE)
     Route: 037
     Dates: start: 20140703, end: 20140708
  7. METHOTREXATE SODIUM. [Suspect]
     Active Substance: METHOTREXATE SODIUM
     Indication: ANAPLASTIC LARGE CELL LYMPHOMA T- AND NULL-CELL TYPES
     Dosage: 12 MG, CYCLIC, PROPHASE (CYCLE=5 DAYS); ON DAY 1 (12 MG, 1 IN 5 D)
     Route: 039
     Dates: start: 20140703, end: 20140703
  8. VP-16 [Concomitant]
     Active Substance: ETOPOSIDE
     Dosage: 179 MG, (179 MG, 1 IN 1 CYCLICAL)
     Route: 042
     Dates: start: 20140902, end: 20140903
  9. DOXORUBICIN HCL [Suspect]
     Active Substance: DOXORUBICIN HYDROCHLORIDE
     Dosage: 44 MG, COURSE B, OVER 1-15 MIN ON DAYS 4 AND 5 (44 MG, 2 IN 21 D)
     Dates: start: 20140922, end: 20140923
  10. METHOTREXATE SODIUM. [Suspect]
     Active Substance: METHOTREXATE SODIUM
     Dosage: 5160 MG,  COURSE A AND B, OVER 3 HOURS ON DAY 1 (5160 MG, 1 IN 21 D)
     Route: 042
     Dates: start: 20141013
  11. CYCLOPHOSPHAMIDE. [Suspect]
     Active Substance: CYCLOPHOSPHAMIDE
     Indication: ANAPLASTIC LARGE CELL LYMPHOMA T- AND NULL-CELL TYPES
     Dosage: 362 MG/M2, PROPHASE, OVER 15-30 MINUTES ON DAYS 1 AND 2 (362 MG/M2, 2 IN 5D)
     Route: 042
     Dates: start: 20140703
  12. DEXAMETHASONE. [Suspect]
     Active Substance: DEXAMETHASONE
     Dosage: PROPHASE (CYCLE = 5 DAYS) ON DAYS 3-5 (9 MG, 2 IN 1 D)
     Route: 048
  13. DEXAMETHASONE. [Suspect]
     Active Substance: DEXAMETHASONE
     Dosage: 8.75 MG COURSE A AND B, ON DAYS 1-5 (8.75 MG, 2 IN 1 D)
     Dates: start: 20140804, end: 20140808
  14. CYTARABINE. [Concomitant]
     Active Substance: CYTARABINE
     Dosage: 273 MG, Q12 HOURS, (TOTAL 4 DOSES) (273 MG, 1 IN 12 HR)
     Route: 042
     Dates: start: 20140716, end: 20140718
  15. CYTARABINE. [Concomitant]
     Active Substance: CYTARABINE
     Dosage: 261 MG, Q12 HOURS, (TOTAL 4 DOSES) (261 MG, 1 IN 12 HR)
     Route: 042
     Dates: start: 20140902, end: 20140903
  16. METHOTREXATE SODIUM. [Suspect]
     Active Substance: METHOTREXATE SODIUM
     Dosage: 5280 MG, COURSE A AND B, OVER 3 HOURS ON DAY 1 (5280 MG, 1 IN 21 D)
     Route: 042
     Dates: start: 20140919
  17. IFOSFAMIDE. [Concomitant]
     Active Substance: IFOSFAMIDE
     Dosage: 1376 MG, (1376 MG, 1 IN 1 D)
     Route: 042
     Dates: start: 20141013, end: 20141017
  18. DEXAMETHASONE. [Suspect]
     Active Substance: DEXAMETHASONE
     Dosage: 8.75 COURSE A AND B, ON DAYS 1-5 (8.75 MG, 2 IN 1 D)
     Dates: start: 20141013, end: 20141017
  19. CYTARABINE. [Concomitant]
     Active Substance: CYTARABINE
     Indication: ANAPLASTIC LARGE CELL LYMPHOMA T- AND NULL-CELL TYPES
     Dosage: 24 MG PROPHASE (CYCLE=5 DAYS), ON DAY 1 (24 MG, 1 IN 5 D)
     Route: 037
     Dates: start: 20140703
  20. CYTARABINE. [Concomitant]
     Active Substance: CYTARABINE
     Dosage: 260 MG, Q12 HOURS, (TOTAL 4 DOSES) (260 MG, 1 IN 12 HR)
     Dates: start: 20141016, end: 20141017
  21. METHOTREXATE SODIUM. [Suspect]
     Active Substance: METHOTREXATE SODIUM
     Dosage: 5460 MG, COURSE A AND B, OVER 3 HOURS ON DAY 1 (5460 MG, 1 IN 21 D)
     Route: 042
     Dates: start: 20140713
  22. METHOTREXATE SODIUM. [Suspect]
     Active Substance: METHOTREXATE SODIUM
     Dosage: 5220 MG, COURSE A AND B, OVER 3 HOURS ON DAY 1 (5220 MG, 1 IN 21 D)
     Route: 042
     Dates: start: 20140805
  23. METHOTREXATE SODIUM. [Suspect]
     Active Substance: METHOTREXATE SODIUM
     Dosage: 5220 MG, COURSE A AND B, OVER 3 HOURS ON DAY 1 (5220 MG, 1 IN 21 D)
     Route: 042
     Dates: start: 20140830
  24. DEXAMETHASONE. [Suspect]
     Active Substance: DEXAMETHASONE
     Dosage: 9 MG  COURSE A AND B, TWICE DAILY ON DAYS 1-5
     Dates: start: 20140919, end: 20140923
  25. EMEND [Suspect]
     Active Substance: APREPITANT
  26. IFOSFAMIDE. [Concomitant]
     Active Substance: IFOSFAMIDE
     Dosage: 1392 MG, (1392 MG, 1 IN 1 D)
     Route: 042
     Dates: start: 20140830, end: 20140903
  27. DOXORUBICIN HCL [Suspect]
     Active Substance: DOXORUBICIN HYDROCHLORIDE
     Indication: ANAPLASTIC LARGE CELL LYMPHOMA T- AND NULL-CELL TYPES
     Dosage: 44MG, COURSE B, OVER 1-15 MIN ON DAYS 4 AND 5 (44MG, 2 IN 21 D)
     Route: 042
     Dates: start: 20140808, end: 20140809
  28. DEXAMETHASONE. [Suspect]
     Active Substance: DEXAMETHASONE
     Dosage: 9 MG, COURSE A AND B, ON DAYS 1-5 (9 MG, 2 IN 1 D)
     Route: 048
     Dates: start: 20140710, end: 20140717
  29. IFOSFAMIDE. [Concomitant]
     Active Substance: IFOSFAMIDE
     Indication: ANAPLASTIC LARGE CELL LYMPHOMA T- AND NULL-CELL TYPES
     Dosage: 1456 MG, (1456 MG, 1 IN 1 D)
     Route: 042
     Dates: start: 20140713, end: 20140717
  30. VP-16 [Concomitant]
     Active Substance: ETOPOSIDE
     Indication: ANAPLASTIC LARGE CELL LYMPHOMA T- AND NULL-CELL TYPES
     Dosage: 182 MG, (182 MG, 1 IN 1 CYCLICAL)
     Route: 042
     Dates: start: 20140716, end: 20140717
  31. CRIZOTINIB [Suspect]
     Active Substance: CRIZOTINIB
     Indication: ANAPLASTIC LARGE CELL LYMPHOMA T- AND NULL-CELL TYPES
     Dosage: 165 MG/M2, CYCLIC, COURSE A AND B ON 1-21 DAYS (165 MG/M2, 2 IN 1 D)
     Route: 048
     Dates: start: 20140708, end: 20140816
  32. DOXORUBICIN HCL [Suspect]
     Active Substance: DOXORUBICIN HYDROCHLORIDE
     Dosage: (1 IN 1 CYCLICAL)
     Dates: start: 20141106, end: 20141107
  33. CYCLOPHOSPHAMIDE. [Suspect]
     Active Substance: CYCLOPHOSPHAMIDE
     Dosage: 348 MG, COURSE B, OVER 15-30 MINUTES ON DAYS 1-5 (348 MG, 5 IN 21D)
     Route: 042
     Dates: start: 20140805, end: 20140809
  34. VP-16 [Concomitant]
     Active Substance: ETOPOSIDE
     Dosage: 172 MG, (172 MG, 1 IN 1 CYCLICAL)
     Route: 042
     Dates: start: 20141016, end: 20141017

REACTIONS (3)
  - Stomatitis [Recovering/Resolving]
  - Stomatitis [Recovered/Resolved]
  - Oesophagitis [Recovered/Resolved]

NARRATIVE: CASE EVENT DATE: 20140817
